FAERS Safety Report 6550237-0 (Version None)
Quarter: 2010Q1

REPORT INFORMATION
  Report Type: 
  Country: None (occurrence: None)
  Receive Date: 20100119
  Receipt Date: 20100104
  Transmission Date: 20100710
  Serious: Yes (Hospitalization)
  Sender: FDA-Public Use
  Company Number: 2010000066

PATIENT
  Age: 72 Year
  Sex: Male
  Weight: 58.8 kg

DRUGS (6)
  1. ERLOTINIB HYDROCHLORIDE [Suspect]
     Indication: LUNG SQUAMOUS CELL CARCINOMA STAGE UNSPECIFIED
     Dosage: (150 MG, QD), ORAL
     Route: 048
     Dates: start: 20090115, end: 20090306
  2. BIO-THREE [Concomitant]
  3. LOXONIN (LOXOPROFEN SODIUM) [Concomitant]
  4. MARZULENE (SODIUM GUALENATE) [Concomitant]
  5. MAGNESIUM OXIDE (MAGNESIUM OXIDE) [Concomitant]
  6. FAMOTIDINE [Concomitant]

REACTIONS (4)
  - DIARRHOEA [None]
  - HYPONATRAEMIA [None]
  - RASH [None]
  - STOMATITIS [None]
